FAERS Safety Report 25485514 (Version 2)
Quarter: 2025Q4

REPORT INFORMATION
  Report Type: Spontaneous
  Country: JP (occurrence: JP)
  Receive Date: 20250626
  Receipt Date: 20251001
  Transmission Date: 20260118
  Serious: Yes (Hospitalization)
  Sender: EISAI
  Company Number: JP-Eisai-202503658_LEN-RCC_P_1

PATIENT
  Age: 74 Year
  Sex: Male

DRUGS (3)
  1. LENVIMA [Suspect]
     Active Substance: LENVATINIB
     Indication: Renal cell carcinoma
     Route: 048
     Dates: start: 20250314, end: 20250323
  2. LENVIMA [Suspect]
     Active Substance: LENVATINIB
     Route: 048
     Dates: start: 20250324, end: 20250404
  3. KEYTRUDA [Suspect]
     Active Substance: PEMBROLIZUMAB
     Indication: Renal cell carcinoma
     Dosage: 1 COURSE
     Route: 041
     Dates: start: 20250314, end: 20250404

REACTIONS (1)
  - Autoimmune cholangitis [Recovered/Resolved]

NARRATIVE: CASE EVENT DATE: 20250606
